FAERS Safety Report 19040526 (Version 2)
Quarter: 2022Q4

REPORT INFORMATION
  Report Type: Spontaneous
  Country: US (occurrence: US)
  Receive Date: 20210322
  Receipt Date: 20221210
  Transmission Date: 20230112
  Serious: Yes (Hospitalization)
  Sender: FDA-Public Use
  Company Number: US-TAKEDA-2021TUS017844

PATIENT
  Sex: Male

DRUGS (1)
  1. CUVITRU [Suspect]
     Active Substance: HUMAN IMMUNOGLOBULIN G
     Indication: Primary immunodeficiency syndrome
     Dosage: UNK UNK, Q2WEEKS
     Route: 065

REACTIONS (5)
  - Campylobacter infection [Unknown]
  - Escherichia infection [Unknown]
  - Sensory overload [Unknown]
  - Injection site reaction [Unknown]
  - Inappropriate schedule of product administration [Unknown]
